FAERS Safety Report 6407834-2 (Version None)
Quarter: 2009Q4

REPORT INFORMATION
  Report Type: 
  Country: None (occurrence: None)
  Receive Date: 20091020
  Receipt Date: 20091016
  Transmission Date: 20100525
  Serious: No
  Sender: FDA-Public Use
  Company Number: US-B.I. PHARMACEUTICALS,INC./RIDGEFIELD-2009-BP-12137BP

PATIENT
  Sex: Female

DRUGS (5)
  1. ZANTAC 150 [Suspect]
     Indication: ULCER
     Dosage: 600 MG
     Route: 048
     Dates: start: 20090901
  2. TENORMIN [Concomitant]
     Indication: HYPERTENSION
     Dates: start: 19890101
  3. DIOVAN HCT [Concomitant]
     Indication: HYPERTENSION
     Dates: start: 19890101
  4. NORVASC [Concomitant]
     Indication: HYPERTENSION
     Dates: start: 19890101
  5. CARAFATE [Concomitant]
     Indication: ULCER

REACTIONS (1)
  - BACK PAIN [None]
